FAERS Safety Report 7150670-2 (Version None)
Quarter: 2010Q4

REPORT INFORMATION
  Report Type: 
  Country: None (occurrence: None)
  Receive Date: 20101210
  Receipt Date: 20101202
  Transmission Date: 20110411
  Serious: Yes (Hospitalization)
  Sender: FDA-Public Use
  Company Number: PHHY2010US82696

PATIENT
  Sex: Female

DRUGS (1)
  1. TOBI [Suspect]
     Indication: CYSTIC FIBROSIS
     Dosage: 300 MG, BID

REACTIONS (4)
  - BRONCHIAL SECRETION RETENTION [None]
  - FAILURE TO THRIVE [None]
  - PULMONARY FUNCTION TEST DECREASED [None]
  - WEIGHT DECREASED [None]
